FAERS Safety Report 8474815-7 (Version None)
Quarter: 2012Q2

REPORT INFORMATION
  Report Type: 
  Country: None (occurrence: None)
  Receive Date: 20120622
  Receipt Date: 20120613
  Transmission Date: 20120825
  Serious: Yes (Other)
  Sender: FDA-Public Use
  Company Number: DSA_57966_2012

PATIENT
  Sex: Female

DRUGS (5)
  1. CRESTOR [Concomitant]
  2. XANAX [Concomitant]
  3. WELLBUTRIN [Suspect]
     Indication: DEPRESSION
     Dosage: (DF ORAL)
     Route: 048
     Dates: start: 19970101, end: 19970101
  4. EFFEXOR [Suspect]
     Indication: DEPRESSION
     Dosage: (DF ORAL)  ; (DF ORAL)
     Route: 048
     Dates: start: 19970101
  5. EFFEXOR [Suspect]
     Indication: DEPRESSION
     Dosage: (DF ORAL)  ; (DF ORAL)
     Route: 048
     Dates: start: 19950101, end: 19970101

REACTIONS (7)
  - FEELING ABNORMAL [None]
  - DRUG INTERACTION [None]
  - HALLUCINATION [None]
  - VOMITING [None]
  - MALAISE [None]
  - DIZZINESS [None]
  - VERTIGO [None]
